FAERS Safety Report 25073987 (Version 1)
Quarter: 2025Q1

REPORT INFORMATION
  Report Type: Report from Study
  Country: US (occurrence: US)
  Receive Date: 20250313
  Receipt Date: 20250313
  Transmission Date: 20250409
  Serious: Yes (Other)
  Sender: PFIZER
  Company Number: US-PFIZER INC-PV202500028868

PATIENT
  Age: 64 Year
  Sex: Female

DRUGS (3)
  1. BRAFTOVI [Suspect]
     Active Substance: ENCORAFENIB
     Indication: Colon cancer
     Dosage: 300 MG, 1X/DAY
     Route: 048
     Dates: start: 20250225
  2. ERBITUX [Concomitant]
     Active Substance: CETUXIMAB
  3. XELODA [Concomitant]
     Active Substance: CAPECITABINE

REACTIONS (5)
  - Bone pain [Unknown]
  - Pain [Unknown]
  - Headache [Unknown]
  - Insomnia [Unknown]
  - Contusion [Unknown]

NARRATIVE: CASE EVENT DATE: 20250101
